FAERS Safety Report 10096065 (Version 2)
Quarter: 2014Q2

REPORT INFORMATION
  Report Type: Spontaneous
  Country: US (occurrence: US)
  Receive Date: 20140422
  Receipt Date: 20140512
  Transmission Date: 20141212
  Serious: Yes (Other)
  Sender: FDA-Public Use
  Company Number: US-BAYER-2014-056834

PATIENT
  Age: 43 Year
  Sex: Female

DRUGS (11)
  1. OCELLA [Suspect]
  2. METFORMIN [Concomitant]
     Dosage: 1000 MG, BID
     Route: 048
  3. NASONEX [Concomitant]
     Dosage: [2] PUFFS DAILY
     Route: 045
  4. HYDROCHLOROTHIAZIDE [Concomitant]
     Dosage: 25 MG, DAILY
     Route: 048
  5. LORATADINE [Concomitant]
     Dosage: 10 MG, DAILY
     Route: 048
  6. ALBUTEROL [Concomitant]
     Dosage: PRN
     Route: 045
  7. ADVAIR [Concomitant]
     Dosage: 250/50
  8. AMOXICILLIN [Concomitant]
     Dosage: 500 MG, UNK
  9. VENTOLIN [Concomitant]
  10. OMEPRAZOLE [Concomitant]
     Dosage: 20 MG, UNK
  11. PROVENTIL [Concomitant]

REACTIONS (1)
  - Thrombophlebitis superficial [None]
